FAERS Safety Report 7766074-5 (Version None)
Quarter: 2011Q3

REPORT INFORMATION
  Report Type: 
  Country: None (occurrence: None)
  Receive Date: 20110921
  Receipt Date: 20110909
  Transmission Date: 20111222
  Serious: Yes (Hospitalization, Other)
  Sender: FDA-Public Use
  Company Number: PHEH2009US13747

PATIENT
  Sex: Female

DRUGS (7)
  1. HYDROCHLOROTHIAZIDE [Concomitant]
     Indication: HYPERTENSION
  2. LISINOPRIL [Concomitant]
     Indication: HYPERTENSION
  3. WELLBUTRIN [Concomitant]
  4. TYKERB [Concomitant]
     Indication: BREAST CANCER METASTATIC
  5. XELODA [Concomitant]
  6. CLINDAMYCIN [Concomitant]
  7. ZOMETA [Suspect]
     Indication: METASTASES TO BONE
     Dosage: 1 DF, QMO
     Route: 042
     Dates: start: 20030101

REACTIONS (26)
  - NEOPLASM PROGRESSION [None]
  - METASTASES TO CENTRAL NERVOUS SYSTEM [None]
  - PAIN [None]
  - INFECTION [None]
  - FATIGUE [None]
  - METASTASES TO LUNG [None]
  - INTERSTITIAL LUNG DISEASE [None]
  - OSTEONECROSIS OF JAW [None]
  - OSTEOMYELITIS [None]
  - HYPERTENSION [None]
  - PLEURAL EFFUSION [None]
  - EXPOSED BONE IN JAW [None]
  - HYPOAESTHESIA [None]
  - NEOPLASM MALIGNANT [None]
  - ANXIETY [None]
  - ANHEDONIA [None]
  - MENTAL STATUS CHANGES [None]
  - RENAL FAILURE ACUTE [None]
  - HERPES ZOSTER [None]
  - IMPAIRED HEALING [None]
  - PULMONARY EMBOLISM [None]
  - INJURY [None]
  - STOMATITIS [None]
  - SWELLING FACE [None]
  - DYSPNOEA [None]
  - DEHYDRATION [None]
